FAERS Safety Report 19672467 (Version 3)
Quarter: 2021Q3

REPORT INFORMATION
  Report Type: Spontaneous
  Country: US (occurrence: US)
  Receive Date: 20210808
  Receipt Date: 20210809
  Transmission Date: 20211014
  Serious: Yes (Death)
  Sender: FDA-Public Use
  Company Number: US-ENDO PHARMACEUTICALS INC-2021-002935

PATIENT
  Age: 47 Year
  Sex: Male

DRUGS (2)
  1. RANITIDINE. [Suspect]
     Active Substance: RANITIDINE
     Indication: DYSPEPSIA
     Dosage: 150 MG, DAILY
     Route: 065
     Dates: start: 198701, end: 200801
  2. RANITIDINE HYDROCHLORIDE. [Suspect]
     Active Substance: RANITIDINE HYDROCHLORIDE
     Indication: DYSPEPSIA
     Dosage: 150 MG, DAILY
     Route: 065
     Dates: start: 198701, end: 200801

REACTIONS (4)
  - Bone cancer [Fatal]
  - Lung carcinoma cell type unspecified stage IV [Fatal]
  - Brain neoplasm [Fatal]
  - Renal cancer stage IV [Fatal]

NARRATIVE: CASE EVENT DATE: 20080401
